FAERS Safety Report 26077714 (Version 1)
Quarter: 2025Q4

REPORT INFORMATION
  Report Type: Spontaneous
  Country: EU (occurrence: EU)
  Receive Date: 20251122
  Receipt Date: 20251122
  Transmission Date: 20260117
  Serious: Yes (Other)
  Sender: NOVARTIS
  Company Number: EU-PFM-2025-05298

PATIENT
  Age: 59 Year
  Sex: Male

DRUGS (2)
  1. RIBOCICLIB [Suspect]
     Active Substance: RIBOCICLIB
     Indication: Malignant melanoma
     Dosage: UNK
     Route: 065
  2. BINIMETINIB [Suspect]
     Active Substance: BINIMETINIB
     Indication: Malignant melanoma
     Dosage: UNK
     Route: 065

REACTIONS (4)
  - Autoimmune hepatitis [Unknown]
  - Autoimmune colitis [Unknown]
  - Product use issue [Unknown]
  - Off label use [Unknown]
